FAERS Safety Report 11367939 (Version 1)
Quarter: 2015Q3

REPORT INFORMATION
  Report Type: Spontaneous
  Country: None (occurrence: None)
  Receive Date: 20150811
  Receipt Date: 20150811
  Transmission Date: 20151125
  Serious: No
  Sender: FDA-Public Use
  Company Number: None

PATIENT
  Age: 32 Year
  Sex: Female

DRUGS (1)
  1. REMICADE [Suspect]
     Active Substance: INFLIXIMAB
     Indication: IRRITABLE BOWEL SYNDROME
     Dosage: 5 ML EVERY 8 WEEKS INTO A VEIN
     Route: 042

REACTIONS (2)
  - Eczema [None]
  - Psoriasis [None]
